FAERS Safety Report 12169476 (Version 1)
Quarter: 2016Q1

REPORT INFORMATION
  Report Type: Spontaneous
  Country: IT (occurrence: IT)
  Receive Date: 20160310
  Receipt Date: 20160310
  Transmission Date: 20160526
  Serious: Yes (Other)
  Sender: FDA-Public Use
  Company Number: IT-SA-2016SA046684

PATIENT
  Age: 74 Year
  Sex: Male

DRUGS (11)
  1. HUMALOG [Suspect]
     Active Substance: INSULIN LISPRO
     Indication: DIABETES MELLITUS
     Route: 058
     Dates: start: 20150101, end: 20150822
  2. LASIX [Concomitant]
     Active Substance: FUROSEMIDE
     Dosage: STRENGTH ; 25 MG
  3. LANTUS [Suspect]
     Active Substance: INSULIN GLARGINE
     Indication: DIABETES MELLITUS
     Route: 058
     Dates: start: 20150101, end: 20150822
  4. DIFIX [Concomitant]
  5. PLAVIX [Concomitant]
     Active Substance: CLOPIDOGREL BISULFATE
     Dosage: STRENGTH ; 75 MG
  6. SPIRIVA [Concomitant]
     Active Substance: TIOTROPIUM BROMIDE MONOHYDRATE
  7. LENTO-KALIUM [Concomitant]
     Dosage: STRENGTH ; 600 MG
  8. ACETYLSALICYLIC ACID [Concomitant]
     Active Substance: ASPIRIN
  9. LANSOX [Concomitant]
     Active Substance: LANSOPRAZOLE
  10. EPOETIN ZETA [Concomitant]
     Active Substance: ERYTHROPOIETIN
  11. SOTALEX [Concomitant]
     Active Substance: SOTALOL
     Dosage: STRENGTH ; 80 MG

REACTIONS (3)
  - Hypoglycaemia [Recovering/Resolving]
  - Asthenia [Recovering/Resolving]
  - Dysstasia [Recovering/Resolving]

NARRATIVE: CASE EVENT DATE: 20150822
